FAERS Safety Report 21800867 (Version 1)
Quarter: 2022Q4

REPORT INFORMATION
  Report Type: Spontaneous
  Country: US (occurrence: None)
  Receive Date: 20221229
  Receipt Date: 20221229
  Transmission Date: 20230113
  Serious: Yes (Disabling)
  Sender: FDA-Public Use
  Company Number: None

PATIENT
  Age: 67 Year
  Sex: Female
  Weight: 90 kg

DRUGS (1)
  1. STELARA [Suspect]
     Active Substance: USTEKINUMAB
     Indication: Colitis ulcerative

REACTIONS (4)
  - Memory impairment [None]
  - Language disorder [None]
  - Abnormal behaviour [None]
  - Aphasia [None]

NARRATIVE: CASE EVENT DATE: 20220810
